FAERS Safety Report 5709128-7 (Version None)
Quarter: 2008Q2

REPORT INFORMATION
  Report Type: 
  Country: None (occurrence: None)
  Receive Date: 20080416
  Receipt Date: 20080416
  Transmission Date: 20081010
  Serious: Yes (Life-Threatening, Hospitalization, Disabling, Other)
  Sender: FDA-Public Use
  Company Number: None

PATIENT
  Age: 50 Year
  Sex: Female
  Weight: 78.4723 kg

DRUGS (2)
  1. PROPOXYPHENE NAPSYLATE W/ ACETAMINOPHEN [Suspect]
     Indication: TOOTHACHE
     Dosage: 1 TABLET EVERY 4 HOURS PO
     Route: 048
     Dates: start: 20080412, end: 20080412
  2. CLINDAMYCIN HCL [Suspect]
     Indication: INFECTION
     Dosage: 2 CAPSULES 3 TIMES A DAY PO
     Route: 048
     Dates: start: 20080412, end: 20080413

REACTIONS (6)
  - DIZZINESS [None]
  - LOSS OF CONSCIOUSNESS [None]
  - NAUSEA [None]
  - RESPIRATORY ARREST [None]
  - RETCHING [None]
  - VOMITING [None]
